FAERS Safety Report 4717925-X (Version None)
Quarter: 2005Q3

REPORT INFORMATION
  Report Type: 
  Country: None (occurrence: None)
  Receive Date: 20050718
  Receipt Date: 20041112
  Transmission Date: 20060218
  Serious: Yes (Other)
  Sender: FDA-Public Use
  Company Number: K200401765

PATIENT
  Sex: Male

DRUGS (1)
  1. LEVOXYL [Suspect]
     Dates: start: 19940101

REACTIONS (1)
  - INFERTILITY [None]
